FAERS Safety Report 4575670-8 (Version None)
Quarter: 2005Q1

REPORT INFORMATION
  Report Type: 
  Country: None (occurrence: None)
  Receive Date: 20050128
  Receipt Date: 20050128
  Transmission Date: 20050727
  Serious: Yes (Hospitalization)
  Sender: FDA-Public Use
  Company Number: None

PATIENT
  Age: 31 Year
  Sex: Female
  Weight: 103 kg

DRUGS (9)
  1. TAXOTERE [Suspect]
     Indication: ENDOMETRIAL CANCER RECURRENT
     Dosage: 3.6 MG/M2/DAY, IV
     Route: 042
     Dates: start: 20040910, end: 20041021
  2. PRILOSEC [Concomitant]
  3. COUMADIN [Concomitant]
  4. EFFEXOR [Concomitant]
  5. MEGACE [Concomitant]
  6. AMBIEN [Concomitant]
  7. OXYCONTIN [Concomitant]
  8. GABAPENTIN [Concomitant]
  9. OXYCODONE [Concomitant]

REACTIONS (6)
  - DYSPNOEA [None]
  - METASTATIC NEOPLASM [None]
  - PAIN [None]
  - PLEURAL EFFUSION [None]
  - URINARY TRACT INFECTION [None]
  - WEIGHT INCREASED [None]
